FAERS Safety Report 9871822 (Version 1)
Quarter: 2014Q1

REPORT INFORMATION
  Report Type: Report from Study
  Country: BR (occurrence: BR)
  Receive Date: 20140205
  Receipt Date: 20140205
  Transmission Date: 20141002
  Serious: Yes (Other)
  Sender: FDA-Public Use
  Company Number: PHHY2014BR012150

PATIENT
  Sex: Female
  Weight: 57 kg

DRUGS (4)
  1. ZELMAC [Suspect]
     Indication: CONSTIPATION
     Dosage: 1 DF, QD
     Route: 048
  2. LOSARTAN [Suspect]
     Dosage: 50 MG, UNK
  3. LOSARTAN [Suspect]
     Dosage: 100 MG, UNK
  4. ARADOIS [Suspect]
     Indication: HYPERTENSION
     Dosage: 100 MG, UNK

REACTIONS (9)
  - Gastrooesophageal reflux disease [Recovering/Resolving]
  - Hypertension [Recovering/Resolving]
  - Weight increased [Recovering/Resolving]
  - Blister [Recovering/Resolving]
  - Gastric dilatation [Recovering/Resolving]
  - Abdominal adhesions [Recovering/Resolving]
  - Liver disorder [Recovering/Resolving]
  - Muscle rupture [Recovering/Resolving]
  - Constipation [Recovering/Resolving]
